FAERS Safety Report 15302091 (Version 1)
Quarter: 2018Q3

REPORT INFORMATION
  Report Type: Spontaneous
  Country: PT (occurrence: PT)
  Receive Date: 20180821
  Receipt Date: 20180821
  Transmission Date: 20181010
  Serious: Yes (Hospitalization)
  Sender: FDA-Public Use
  Company Number: PT-FRESENIUS KABI-FK201808825

PATIENT
  Age: 26 Year
  Sex: Male

DRUGS (13)
  1. STANOZOLOL [Suspect]
     Active Substance: STANOZOLOL
     Indication: PRODUCT USED FOR UNKNOWN INDICATION
     Route: 065
  2. CABERGOLINE. [Suspect]
     Active Substance: CABERGOLINE
     Indication: PRODUCT USED FOR UNKNOWN INDICATION
     Route: 065
  3. TRENBOLONE [Suspect]
     Active Substance: TRENBOLONE
     Indication: PRODUCT USED FOR UNKNOWN INDICATION
     Route: 065
  4. MESTEROLONE [Suspect]
     Active Substance: MESTEROLONE
     Indication: PRODUCT USED FOR UNKNOWN INDICATION
     Route: 065
  5. DROSTANOLONE PROPIONATE [Suspect]
     Active Substance: DROMOSTANOLONE PROPIONATE
     Indication: PRODUCT USED FOR UNKNOWN INDICATION
     Route: 065
  6. LEVOTHYROXINE. [Suspect]
     Active Substance: LEVOTHYROXINE
     Indication: PRODUCT USED FOR UNKNOWN INDICATION
     Route: 065
  7. LIOTHYRONINE [Suspect]
     Active Substance: LIOTHYRONINE
     Indication: PRODUCT USED FOR UNKNOWN INDICATION
     Route: 065
  8. ANASTROZOLE (MANUFACTURER UNKNOWN) [Suspect]
     Active Substance: ANASTROZOLE
     Indication: PRODUCT USED FOR UNKNOWN INDICATION
     Route: 065
  9. SUSTANON [Suspect]
     Active Substance: TESTOSTERONE
     Indication: PRODUCT USED FOR UNKNOWN INDICATION
     Route: 065
  10. TESTOSTERONE ENANTHATE. [Suspect]
     Active Substance: TESTOSTERONE ENANTHATE
     Indication: PRODUCT USED FOR UNKNOWN INDICATION
     Route: 065
  11. FLUOXYMESTERONE [Suspect]
     Active Substance: FLUOXYMESTERONE
     Indication: PRODUCT USED FOR UNKNOWN INDICATION
     Route: 065
  12. BOLDENONE [Suspect]
     Active Substance: BOLDENONE
     Indication: PRODUCT USED FOR UNKNOWN INDICATION
     Route: 065
  13. TESTOSTERONE CYPIONATE. [Suspect]
     Active Substance: TESTOSTERONE CYPIONATE
     Indication: PRODUCT USED FOR UNKNOWN INDICATION
     Route: 065

REACTIONS (1)
  - Drug abuse [Unknown]
